FAERS Safety Report 11862658 (Version 1)
Quarter: 2015Q4

REPORT INFORMATION
  Report Type: Spontaneous
  Country: US (occurrence: US)
  Receive Date: 20151223
  Receipt Date: 20151223
  Transmission Date: 20160305
  Serious: No
  Sender: FDA-Public Use
  Company Number: ALCN2015US007888

PATIENT
  Age: 70 Year
  Sex: Female

DRUGS (1)
  1. SYSTANE (HYPROMELLOSE 2910 (4000 MPA.S)) [Suspect]
     Active Substance: HYPROMELLOSE 2910 (4000 MPA.S)
     Indication: DRY EYE
     Dosage: 2 GTT, PRN
     Route: 047
     Dates: start: 201412

REACTIONS (1)
  - Vision blurred [Recovered/Resolved]

NARRATIVE: CASE EVENT DATE: 201412
